FAERS Safety Report 6536971-7 (Version None)
Quarter: 2010Q1

REPORT INFORMATION
  Report Type: 
  Country: None (occurrence: None)
  Receive Date: 20100107
  Receipt Date: 20100106
  Transmission Date: 20100710
  Serious: Yes (Hospitalization)
  Sender: FDA-Public Use
  Company Number: NSR_00020_2009

PATIENT
  Age: 43 Year
  Sex: Female

DRUGS (3)
  1. IBUPROFEN TABLETS [Suspect]
     Indication: DRUG USE FOR UNKNOWN INDICATION
     Dosage: 95400 MG 1X, NOT THE PRESCRIBED AMOUNT, ORAL
     Route: 048
  2. NICOTINE [Concomitant]
  3. CAFFEINE [Concomitant]

REACTIONS (7)
  - ACIDOSIS [None]
  - BLOOD PRESSURE DECREASED [None]
  - HAEMODIALYSIS [None]
  - HALLUCINATION, AUDITORY [None]
  - HEART RATE DECREASED [None]
  - PARANOIA [None]
  - UNRESPONSIVE TO STIMULI [None]
